FAERS Safety Report 19469013 (Version 2)
Quarter: 2021Q3

REPORT INFORMATION
  Report Type: Spontaneous
  Country: IN (occurrence: IN)
  Receive Date: 20210629
  Receipt Date: 20210908
  Transmission Date: 20211014
  Serious: Yes (Other)
  Sender: FDA-Public Use
  Company Number: IN-TORRENT-00002834

PATIENT
  Age: 22 Year
  Sex: Male

DRUGS (4)
  1. VANCOMYCIN [Concomitant]
     Active Substance: VANCOMYCIN
     Indication: LIVER ABSCESS
     Dosage: UNKNOWN
     Route: 042
  2. ITRACONAZOLE. [Suspect]
     Active Substance: ITRACONAZOLE
     Indication: ANTIBIOTIC PROPHYLAXIS
     Dosage: 200 MG/DAY FOR THE PAST 6 YEARS
  3. SULFAMETHOXAZOLE/TRIMETHOPRIM [Concomitant]
     Active Substance: SULFAMETHOXAZOLE\TRIMETHOPRIM
     Indication: ANTIBIOTIC PROPHYLAXIS
     Dosage: 400 + 80 MG/DAY FOR THE PAST 6 YEARS
  4. LINEZOLID. [Interacting]
     Active Substance: LINEZOLID
     Indication: LIVER ABSCESS
     Dosage: LONG?TERM THERAPY, 600 MG TWICE A DAY
     Route: 048

REACTIONS (6)
  - Optic neuropathy [Unknown]
  - Drug interaction [Unknown]
  - Mitochondrial toxicity [Unknown]
  - Retinal cyst [Recovered/Resolved]
  - Neuropathy peripheral [Unknown]
  - Drug level increased [Unknown]
